FAERS Safety Report 9119706 (Version 2)
Quarter: 2013Q1

REPORT INFORMATION
  Report Type: Spontaneous
  Country: GB (occurrence: GB)
  Receive Date: 20130226
  Receipt Date: 20130326
  Transmission Date: 20140127
  Serious: No
  Sender: FDA-Public Use
  Company Number: GB-MERCK-1302GBR010227

PATIENT
  Sex: 0

DRUGS (1)
  1. COZAAR 50 MG [Suspect]
     Indication: HYPERTENSION
     Dosage: 50 MG, UNK

REACTIONS (1)
  - Gastric neoplasm [Unknown]
